FAERS Safety Report 7892515-9 (Version None)
Quarter: 2011Q4

REPORT INFORMATION
  Report Type: 
  Country: None (occurrence: None)
  Receive Date: 20111104
  Receipt Date: 20111021
  Transmission Date: 20120403
  Serious: Yes (Congenital Anomaly)
  Sender: FDA-Public Use
  Company Number: GB-MYLANLABS-2011S1021989

PATIENT
  Sex: Female

DRUGS (2)
  1. KEPPRA [Suspect]
     Route: 064
  2. LAMOTRIGINE [Suspect]
     Route: 064

REACTIONS (2)
  - MATERNAL EXPOSURE DURING PREGNANCY [None]
  - PYLORIC STENOSIS [None]
